FAERS Safety Report 7281577-8 (Version None)
Quarter: 2011Q1

REPORT INFORMATION
  Report Type: 
  Country: None (occurrence: None)
  Receive Date: 20110208
  Receipt Date: 20110128
  Transmission Date: 20110831
  Serious: Yes (Other)
  Sender: FDA-Public Use
  Company Number: PHEH2011US00447

PATIENT
  Age: 34 Year
  Sex: Male

DRUGS (1)
  1. TRILEPTAL [Suspect]
     Indication: BIPOLAR DISORDER

REACTIONS (7)
  - AFFECT LABILITY [None]
  - PSYCHIATRIC SYMPTOM [None]
  - MENTAL DISORDER [None]
  - CONDITION AGGRAVATED [None]
  - FAMILY STRESS [None]
  - SUICIDE ATTEMPT [None]
  - LOSS OF EMPLOYMENT [None]
